FAERS Safety Report 12495365 (Version 1)
Quarter: 2016Q2

REPORT INFORMATION
  Report Type: Report from Study
  Country: US (occurrence: US)
  Receive Date: 20160624
  Receipt Date: 20160624
  Transmission Date: 20160815
  Serious: Yes (Hospitalization)
  Sender: FDA-Public Use
  Company Number: US-BAYER-2016-080415

PATIENT
  Age: 40 Year
  Sex: Female

DRUGS (2)
  1. STIVARGA [Suspect]
     Active Substance: REGORAFENIB
     Indication: COLORECTAL CANCER
     Dosage: 40 MG, QD
     Route: 048
     Dates: start: 201603, end: 20160421
  2. STIVARGA [Suspect]
     Active Substance: REGORAFENIB
     Indication: COLORECTAL CANCER
     Dosage: 80 MG, QD
     Route: 048
     Dates: start: 20160512

REACTIONS (17)
  - Asthenia [None]
  - Ascites [None]
  - Fatigue [None]
  - Skin exfoliation [None]
  - Blood pressure increased [None]
  - Skin exfoliation [None]
  - Abdominal distension [None]
  - Nausea [None]
  - Constipation [None]
  - Dyspnoea [None]
  - Constipation [None]
  - Abdominal pain [None]
  - Vomiting [None]
  - Fatigue [None]
  - Dry skin [None]
  - Decreased appetite [None]
  - Weight decreased [None]

NARRATIVE: CASE EVENT DATE: 2016
